FAERS Safety Report 9122062 (Version 1)
Quarter: 2013Q1

REPORT INFORMATION
  Report Type: Spontaneous
  Country: DK (occurrence: GB)
  Receive Date: 20130114
  Receipt Date: 20130114
  Transmission Date: 20140127
  Serious: Yes (Other)
  Sender: FDA-Public Use
  Company Number: GB-FRI-1000041593

PATIENT
  Age: 24 Year
  Sex: Female
  Weight: 112 kg

DRUGS (2)
  1. ESCITALOPRAM [Suspect]
     Indication: DEPRESSION
     Dosage: 20 MG
     Route: 048
     Dates: start: 20101113, end: 20120917
  2. RAMIPRIL [Concomitant]

REACTIONS (1)
  - Infertility female [Recovered/Resolved]
